FAERS Safety Report 6614167-8 (Version None)
Quarter: 2010Q1

REPORT INFORMATION
  Report Type: 
  Country: None (occurrence: None)
  Receive Date: 20100303
  Receipt Date: 20100303
  Transmission Date: 20100710
  Serious: Yes (Hospitalization)
  Sender: FDA-Public Use
  Company Number: None

PATIENT
  Age: 30 Year
  Sex: Male

DRUGS (2)
  1. MIDAZOLAM HCL [Suspect]
     Dosage: 5 MG ONCE IV
     Route: 042
     Dates: start: 20100225, end: 20100225
  2. FENTANYL [Suspect]
     Dosage: 100 MCG ONCE IV
     Route: 042
     Dates: start: 20100225, end: 20100225

REACTIONS (3)
  - DELAYED RECOVERY FROM ANAESTHESIA [None]
  - SEDATION [None]
  - SOMNOLENCE [None]
